FAERS Safety Report 7100072-X (Version None)
Quarter: 2010Q4

REPORT INFORMATION
  Report Type: 
  Country: None (occurrence: None)
  Receive Date: 20101112
  Receipt Date: 20090921
  Transmission Date: 20110411
  Serious: No
  Sender: FDA-Public Use
  Company Number: A0808282A

PATIENT
  Age: 85 Year
  Sex: Female

DRUGS (4)
  1. COREG [Suspect]
     Indication: HYPERTENSION
     Dosage: 6.25MG TWICE PER DAY
     Route: 048
  2. LISINOPRIL [Concomitant]
  3. XANAX [Concomitant]
  4. MULTIPLE MEDICATIONS [Concomitant]

REACTIONS (1)
  - DRUG INEFFECTIVE [None]
